FAERS Safety Report 16614589 (Version 1)
Quarter: 2019Q3

REPORT INFORMATION
  Report Type: Spontaneous
  Country: DK (occurrence: DK)
  Receive Date: 20190723
  Receipt Date: 20190723
  Transmission Date: 20191004
  Serious: Yes (Life-Threatening)
  Sender: FDA-Public Use
  Company Number: DK-ESPERO PHARMACEUTICALS-ESP201907-000038

PATIENT
  Age: 83 Year
  Sex: Female

DRUGS (1)
  1. NITROGLYCERIN. [Suspect]
     Active Substance: NITROGLYCERIN
     Indication: CHEST PAIN
     Route: 060

REACTIONS (4)
  - Cardiac arrest [Recovered/Resolved]
  - Cold sweat [Recovered/Resolved]
  - Respiratory arrest [Recovered/Resolved]
  - Cyanosis [Recovered/Resolved]
